FAERS Safety Report 7254396-6 (Version None)
Quarter: 2011Q1

REPORT INFORMATION
  Report Type: 
  Country: None (occurrence: None)
  Receive Date: 20110129
  Receipt Date: 20100413
  Transmission Date: 20110831
  Serious: No
  Sender: FDA-Public Use
  Company Number: US-ABBOTT-10P-163-0638215-00

PATIENT
  Sex: Female
  Weight: 68.1 kg

DRUGS (5)
  1. METHOTREXATE [Concomitant]
     Indication: ANKYLOSING SPONDYLITIS
  2. MOTRIN [Concomitant]
     Indication: PAIN
  3. LEVOTHYROXINE SODIUM [Concomitant]
     Indication: HYPOTHYROIDISM
  4. HUMIRA [Suspect]
     Indication: ANKYLOSING SPONDYLITIS
     Dates: start: 20100301
  5. PREDNISONE [Concomitant]
     Indication: ANKYLOSING SPONDYLITIS

REACTIONS (9)
  - INJURY [None]
  - HYPOAESTHESIA [None]
  - JOINT INJURY [None]
  - MUSCULAR WEAKNESS [None]
  - INJECTION SITE PAIN [None]
  - INCREASED TENDENCY TO BRUISE [None]
  - RASH [None]
  - EXCORIATION [None]
  - INJECTION SITE HAEMATOMA [None]
